FAERS Safety Report 10339709 (Version 2)
Quarter: 2014Q3

REPORT INFORMATION
  Report Type: Spontaneous
  Country: US (occurrence: US)
  Receive Date: 20140724
  Receipt Date: 20140811
  Transmission Date: 20150326
  Serious: Yes (Hospitalization)
  Sender: FDA-Public Use
  Company Number: US-GLAXOSMITHKLINE-A1082144A

PATIENT
  Age: 74 Year
  Sex: Female

DRUGS (3)
  1. ADVAIR HFA [Suspect]
     Active Substance: FLUTICASONE PROPIONATE\SALMETEROL XINAFOATE
     Indication: ASTHMA
     Dosage: 1PUFF TWICE PER DAY
     Route: 055
     Dates: start: 2005
  2. MUCINEX [Concomitant]
     Active Substance: GUAIFENESIN
  3. NEBULIZER [Concomitant]
     Active Substance: UNSPECIFIED INGREDIENT

REACTIONS (3)
  - Pneumonia [Not Recovered/Not Resolved]
  - Airway secretion clearance therapy [Unknown]
  - Croup infectious [Unknown]

NARRATIVE: CASE EVENT DATE: 20131031
